FAERS Safety Report 4590286-5 (Version None)
Quarter: 2005Q1

REPORT INFORMATION
  Report Type: 
  Country: None (occurrence: None)
  Receive Date: 20050217
  Receipt Date: 20050203
  Transmission Date: 20050727
  Serious: Yes (Hospitalization)
  Sender: FDA-Public Use
  Company Number: A02200500286

PATIENT
  Age: 44 Year
  Sex: Male

DRUGS (1)
  1. PLAQUENIL [Suspect]
     Indication: SYSTEMIC LUPUS ERYTHEMATOSUS
     Dosage: 100 MG, QD, ORAL
     Route: 048
     Dates: start: 20041123, end: 20041211

REACTIONS (7)
  - DRUG INEFFECTIVE [None]
  - EAR DISORDER [None]
  - EOSINOPHIL COUNT INCREASED [None]
  - RASH ERYTHEMATOUS [None]
  - RASH PRURITIC [None]
  - SKIN LESION [None]
  - URTICARIA [None]
